FAERS Safety Report 7148594-X (Version None)
Quarter: 2010Q4

REPORT INFORMATION
  Report Type: 
  Country: None (occurrence: None)
  Receive Date: 20101209
  Receipt Date: 20091116
  Transmission Date: 20110411
  Serious: No
  Sender: FDA-Public Use
  Company Number: A0817223A

PATIENT
  Age: 68 Year
  Sex: Female

DRUGS (7)
  1. AVANDAMET [Suspect]
     Dosage: 1TAB THREE TIMES PER DAY
     Route: 048
     Dates: start: 20091021
  2. TRICOR [Concomitant]
  3. ENTERIC ASPIRIN [Concomitant]
  4. INSULIN [Concomitant]
  5. OXYBUTYNIN [Concomitant]
  6. FISH OIL [Concomitant]
  7. VITAMIN D [Concomitant]

REACTIONS (2)
  - COUGH [None]
  - DRUG INEFFECTIVE [None]
